FAERS Safety Report 9874749 (Version 1)
Quarter: 2014Q1

REPORT INFORMATION
  Report Type: Spontaneous
  Country: US (occurrence: None)
  Receive Date: 20140205
  Receipt Date: 20140205
  Transmission Date: 20141002
  Serious: Yes (Other)
  Sender: FDA-Public Use
  Company Number: None

PATIENT
  Age: 93 Year
  Sex: Female
  Weight: 54.43 kg

DRUGS (1)
  1. ENOXAPARIA [Suspect]
     Indication: THROMBOSIS
     Dates: start: 20131224, end: 20131231

REACTIONS (3)
  - Tooth discolouration [None]
  - Dental caries [None]
  - Tooth fracture [None]
